FAERS Safety Report 23725618 (Version 1)
Quarter: 2024Q2

REPORT INFORMATION
  Report Type: Spontaneous
  Country: IT (occurrence: IT)
  Receive Date: 20240410
  Receipt Date: 20240410
  Transmission Date: 20240716
  Serious: Yes (Hospitalization)
  Sender: FDA-Public Use
  Company Number: None

PATIENT
  Age: 77 Year
  Sex: Male

DRUGS (8)
  1. ELIQUIS [Suspect]
     Active Substance: APIXABAN
     Indication: Atrial fibrillation
     Dosage: ELIQUIS*60CPR RIV 5MG - 2 CPR/DAY - SUSPECTED DRUG
     Route: 048
     Dates: start: 20240304
  2. LASIX [Concomitant]
     Active Substance: FUROSEMIDE
     Indication: Product used for unknown indication
     Dosage: LASIX*30CPR 25MG - 1 CP/DAY
     Route: 048
  3. INSULIN LISPRO [Concomitant]
     Active Substance: INSULIN LISPRO
     Indication: Diabetes mellitus
     Dosage: INSULIN LISPRO SANOFI*SOLOS5P- 5U+5U+3U AT BREAKFAST, LUNCH AND DINNER (SUBJECT TO DTX)
     Route: 058
  4. CEFTRIAXONE SODIUM [Concomitant]
     Active Substance: CEFTRIAXONE SODIUM
     Indication: Urinary tract infection
     Dosage: CEFTRIAXONE EG*IM 1G+1F 3.5ML - 1 FL/DAY (STARTED ON 10/03/2024 AND DISCONTINUED FOR HOSPITALIZATION
     Route: 030
     Dates: start: 20240310, end: 20240310
  5. ALLOPURINOL [Concomitant]
     Active Substance: ALLOPURINOL
     Indication: Hyperuricaemia
     Dosage: ALLOPURINOL TEVA*30CPR 300MG - 1 CP/DAY
     Route: 048
  6. PRAVASTATINA MYLAN [Concomitant]
     Indication: Dyslipidaemia
     Dosage: PRAVASTATIN MY*28CPR 20MG- 1 CP/DAY IN THE EVENING
     Route: 048
  7. CLOPIDOGREL BISULFATE [Concomitant]
     Active Substance: CLOPIDOGREL BISULFATE
     Indication: Myocardial ischaemia
     Dosage: CLOPIDOGREL ZEN*28CPR RIV 75MG- 1 CP/DAY
     Route: 048
  8. TAMSULOSIN [Concomitant]
     Active Substance: TAMSULOSIN
     Indication: Benign prostatic hyperplasia
     Dosage: TAMSULOSIN MY*20CPS 0.4MG RM - 1 CP/DAY
     Route: 048

REACTIONS (3)
  - Pain [Recovered/Resolved]
  - Anaemia [Recovered/Resolved]
  - Tremor [Recovered/Resolved]

NARRATIVE: CASE EVENT DATE: 20240311
